FAERS Safety Report 7216968-4 (Version None)
Quarter: 2011Q1

REPORT INFORMATION
  Report Type: 
  Country: None (occurrence: None)
  Receive Date: 20110110
  Receipt Date: 20110105
  Transmission Date: 20110831
  Serious: Yes (Death)
  Sender: FDA-Public Use
  Company Number: US-ASTELLAS-2011US000043

PATIENT

DRUGS (22)
  1. MAGNESIUM OXIDE [Concomitant]
     Indication: SUPPLEMENTATION THERAPY
     Dosage: 400 MG, BID
     Route: 048
     Dates: end: 20101220
  2. MYFORTIC [Concomitant]
     Indication: HEART TRANSPLANT
     Dosage: 360 MG, BID
     Route: 048
     Dates: end: 20101220
  3. XANAX [Concomitant]
     Indication: ANXIETY
     Dosage: 0.25 MG, BID
     Route: 048
     Dates: end: 20101220
  4. PERCOCET [Concomitant]
     Indication: BACK PAIN
     Dosage: 1-2 DF, UNKNOWN/D
     Route: 048
     Dates: end: 20101220
  5. CYCLOBENZAPRINE [Concomitant]
     Indication: MUSCLE SPASMS
     Dosage: 100 MG, BID
     Route: 048
     Dates: end: 20101220
  6. COREG [Concomitant]
     Indication: CARDIAC DISORDER
     Dosage: 3.125 MG, BID
     Route: 048
     Dates: end: 20101220
  7. COLACE [Concomitant]
     Indication: CONSTIPATION
     Dosage: 100 MG, PRN
     Route: 048
     Dates: end: 20101220
  8. COLCHICINE [Concomitant]
     Indication: GOUT
     Dosage: 0.6 MG, 2XWEEKLY
     Route: 048
     Dates: end: 20101220
  9. NEPHROCAPS [Concomitant]
     Indication: RENAL DISORDER
     Dosage: 1 DF, UID/QD
     Route: 048
     Dates: end: 20101220
  10. EPOGEN [Concomitant]
     Indication: BLOOD COUNT ABNORMAL
  11. PROGRAF [Suspect]
     Indication: HEART TRANSPLANT
     Dosage: 1 MG, BID
     Route: 048
     Dates: start: 20000724, end: 20101220
  12. ELAVIL [Concomitant]
     Indication: INSOMNIA
  13. NEURONTIN [Concomitant]
     Indication: PAIN
     Dosage: 100 MG, QHS
     Route: 048
     Dates: end: 20101220
  14. PREDNISONE [Concomitant]
     Indication: IMMUNOSUPPRESSANT DRUG THERAPY
     Dosage: 5 MG, UID/QD
     Route: 048
     Dates: end: 20101220
  15. LANTUS [Concomitant]
     Indication: DIABETES MELLITUS
     Dosage: 30 U, QHS/INJECTION
     Route: 058
     Dates: end: 20101220
  16. NOVOLOG [Concomitant]
     Indication: DIABETES MELLITUS
     Dosage: 4 U, UNKNOWN/D
     Route: 058
  17. COUMADIN [Concomitant]
     Indication: ANTICOAGULANT THERAPY
     Dosage: 5 MG, QHS
     Route: 048
     Dates: end: 20101220
  18. ASPIRIN [Concomitant]
     Indication: CARDIAC DISORDER
     Dosage: 325 MG, UID/QD
     Route: 048
     Dates: end: 20101220
  19. PROTONIX [Concomitant]
     Indication: GASTROOESOPHAGEAL REFLUX DISEASE
     Dosage: 40 MG, UID/QD
     Route: 048
     Dates: end: 20101220
  20. CETIRIZINE HCL [Concomitant]
     Indication: HYPERSENSITIVITY
     Dosage: 10 MG, UID/QD
     Route: 048
     Dates: end: 20101220
  21. PLAVIX [Concomitant]
     Indication: ANTICOAGULANT THERAPY
     Dosage: 75 MG, UID/QD
     Route: 048
     Dates: end: 20101220
  22. ELAVIL [Concomitant]
     Indication: DEPRESSION
     Dosage: 25 MG, QHS
     Route: 048
     Dates: end: 20101220

REACTIONS (1)
  - RENAL FAILURE [None]
